FAERS Safety Report 20470292 (Version 3)
Quarter: 2022Q1

REPORT INFORMATION
  Report Type: Spontaneous
  Country: FR (occurrence: FR)
  Receive Date: 20220214
  Receipt Date: 20220302
  Transmission Date: 20220423
  Serious: Yes (Hospitalization, Other)
  Sender: FDA-Public Use
  Company Number: None

PATIENT
  Age: 23 Year
  Sex: Female
  Weight: 55 kg

DRUGS (8)
  1. ABILIFY [Suspect]
     Active Substance: ARIPIPRAZOLE
     Indication: Bipolar disorder
     Dosage: UNK
     Route: 048
     Dates: start: 20220104, end: 20220111
  2. TROPATEPINE HYDROCHLORIDE [Suspect]
     Active Substance: TROPATEPINE HYDROCHLORIDE
     Indication: Bipolar disorder
     Dosage: 10 ML, BID (10 MG TABLETS ADMINISTERED ORALLY AT A DOSE OF 10 ML TWICE A DAY)
     Route: 048
     Dates: start: 20220104
  3. RISPERIDONE [Suspect]
     Active Substance: RISPERIDONE
     Indication: Bipolar disorder
     Dosage: 8ML/J 4-0-4
     Route: 048
  4. RISPERIDONE [Suspect]
     Active Substance: RISPERIDONE
     Dosage: 8ML TWICE A DAY
     Route: 048
  5. ZOPICLONE [Suspect]
     Active Substance: ZOPICLONE
     Indication: Insomnia
     Dosage: 1 IN THE EVENING IF NECESSARY
     Route: 048
     Dates: start: 20220104
  6. LOXAPINE SUCCINATE [Suspect]
     Active Substance: LOXAPINE SUCCINATE
     Indication: Bipolar disorder
     Dosage: 200 DROPS/DAY,50-50-100
     Route: 048
     Dates: start: 20220104
  7. TERALITHE [Suspect]
     Active Substance: LITHIUM CARBONATE
     Indication: Bipolar disorder
     Dosage: 400MG/J 0-0-1
     Route: 048
     Dates: start: 20220111
  8. VALIUM [Suspect]
     Active Substance: DIAZEPAM
     Indication: Bipolar disorder
     Dosage: 60 DROPS/DAY, 20-20-20
     Route: 048
     Dates: start: 20220104

REACTIONS (5)
  - Septic shock [Not Recovered/Not Resolved]
  - Intestinal obstruction [Not Recovered/Not Resolved]
  - Myocarditis septic [Not Recovered/Not Resolved]
  - Colectomy total [Not Recovered/Not Resolved]
  - Constipation [Not Recovered/Not Resolved]

NARRATIVE: CASE EVENT DATE: 20220101
